FAERS Safety Report 6653580-X (Version None)
Quarter: 2010Q1

REPORT INFORMATION
  Report Type: 
  Country: None (occurrence: None)
  Receive Date: 20100326
  Receipt Date: 20100316
  Transmission Date: 20100710
  Serious: Yes (Hospitalization, Other)
  Sender: FDA-Public Use
  Company Number: US-ELI_LILLY_AND_COMPANY-US201003004399

PATIENT
  Sex: Male
  Weight: 117.1 kg

DRUGS (5)
  1. BYETTA [Suspect]
     Indication: TYPE 2 DIABETES MELLITUS
     Dosage: 5 UG, 2/D
     Route: 058
     Dates: start: 20060701, end: 20060801
  2. BYETTA [Suspect]
     Dosage: 10 UG, 2/D
     Route: 058
     Dates: start: 20060801
  3. BYETTA [Suspect]
     Dosage: 10 UG, 2/D
     Route: 058
  4. METFORMIN HYDROCHLORIDE [Concomitant]
     Indication: TYPE 2 DIABETES MELLITUS
     Dosage: 1000 MG, 2/D
     Route: 048
     Dates: start: 20000101
  5. LIPITOR [Concomitant]
     Route: 048

REACTIONS (11)
  - ATRIAL FLUTTER [None]
  - ATRIOVENTRICULAR BLOCK COMPLETE [None]
  - BENIGN PROSTATIC HYPERPLASIA [None]
  - CARDIAC DISORDER [None]
  - CARDIAC FAILURE CONGESTIVE [None]
  - GLYCOSYLATED HAEMOGLOBIN INCREASED [None]
  - INCONTINENCE [None]
  - INCORRECT DOSE ADMINISTERED [None]
  - MEDICAL DEVICE COMPLICATION [None]
  - PRODUCT QUALITY ISSUE [None]
  - ROAD TRAFFIC ACCIDENT [None]
